FAERS Safety Report 15808966 (Version 2)
Quarter: 2022Q3

REPORT INFORMATION
  Report Type: Report from Study
  Country: DE (occurrence: DE)
  Receive Date: 20190110
  Receipt Date: 20220830
  Transmission Date: 20221026
  Serious: Yes (Death, Hospitalization)
  Sender: FDA-Public Use
  Company Number: PHHY2019DE001532

PATIENT
  Sex: Male

DRUGS (44)
  1. METHOTREXATE [Suspect]
     Active Substance: METHOTREXATE
     Indication: Rheumatoid arthritis
     Dosage: 22.5 MG
     Route: 065
     Dates: start: 20090526
  2. METHOTREXATE [Suspect]
     Active Substance: METHOTREXATE
     Dosage: 22.5 MG
     Route: 065
     Dates: start: 20090922
  3. METHOTREXATE [Suspect]
     Active Substance: METHOTREXATE
     Dosage: 22.5 MG
     Route: 065
     Dates: start: 20091210
  4. METHOTREXATE [Suspect]
     Active Substance: METHOTREXATE
     Dosage: 22.5 MG
     Route: 065
     Dates: start: 20100510
  5. METHOTREXATE [Suspect]
     Active Substance: METHOTREXATE
     Dosage: 15 MG
     Route: 065
     Dates: start: 20110118
  6. METHOTREXATE [Suspect]
     Active Substance: METHOTREXATE
     Dosage: 22.5 MG
     Route: 065
     Dates: start: 20110608
  7. METHOTREXATE [Suspect]
     Active Substance: METHOTREXATE
     Dosage: 22.5 MG
     Route: 065
     Dates: start: 20111108
  8. METHOTREXATE [Suspect]
     Active Substance: METHOTREXATE
     Dosage: 22.5 MG
     Route: 065
     Dates: start: 20120509
  9. METHOTREXATE [Suspect]
     Active Substance: METHOTREXATE
     Dosage: 22.5 MG
     Route: 065
     Dates: start: 20121106
  10. METHOTREXATE [Suspect]
     Active Substance: METHOTREXATE
     Dosage: 22.5 MG
     Route: 065
     Dates: start: 20130603
  11. METHOTREXATE [Suspect]
     Active Substance: METHOTREXATE
     Dosage: 22.5 MG
     Route: 065
     Dates: start: 20131203
  12. METHOTREXATE [Suspect]
     Active Substance: METHOTREXATE
     Dosage: 22.5 MG
     Route: 065
     Dates: start: 20140411
  13. METHOTREXATE [Suspect]
     Active Substance: METHOTREXATE
     Dosage: 22.5 MG
     Route: 065
     Dates: start: 20150420
  14. METHOTREXATE [Suspect]
     Active Substance: METHOTREXATE
     Dosage: 22.5 MG
     Route: 065
     Dates: start: 20151014
  15. METHOTREXATE [Suspect]
     Active Substance: METHOTREXATE
     Dosage: 22.5 MG
     Route: 065
     Dates: start: 20160414
  16. METHOTREXATE [Suspect]
     Active Substance: METHOTREXATE
     Dosage: 22.5 MG
     Route: 065
     Dates: start: 20161107
  17. METHOTREXATE [Suspect]
     Active Substance: METHOTREXATE
     Dosage: 22.5 MG
     Route: 065
     Dates: start: 20170511
  18. METHOTREXATE [Suspect]
     Active Substance: METHOTREXATE
     Dosage: 20 MG
     Route: 065
     Dates: start: 20171211
  19. METHOTREXATE [Suspect]
     Active Substance: METHOTREXATE
     Dosage: 20 MG
     Route: 065
     Dates: start: 20180507
  20. METHOTREXATE [Suspect]
     Active Substance: METHOTREXATE
     Dosage: 20 MG
     Route: 065
     Dates: start: 20181107
  21. LEFLUNOMIDE [Suspect]
     Active Substance: LEFLUNOMIDE
     Indication: Rheumatoid arthritis
     Dosage: 10 MG
     Route: 065
     Dates: start: 20170511
  22. LEFLUNOMIDE [Suspect]
     Active Substance: LEFLUNOMIDE
     Dosage: 10 MG
     Route: 065
     Dates: start: 20171211
  23. LEFLUNOMIDE [Suspect]
     Active Substance: LEFLUNOMIDE
     Dosage: 10 MG
     Route: 065
     Dates: start: 20180507
  24. LEFLUNOMIDE [Suspect]
     Active Substance: LEFLUNOMIDE
     Dosage: 10 MG
     Route: 065
     Dates: start: 20181107
  25. SULFASALAZINE [Suspect]
     Active Substance: SULFASALAZINE
     Indication: Rheumatoid arthritis
     Dosage: 2000 MG
     Route: 065
     Dates: start: 20140411
  26. SULFASALAZINE [Suspect]
     Active Substance: SULFASALAZINE
     Dosage: 2000 MG
     Route: 065
     Dates: start: 20150420
  27. UNSPECIFIED INGREDIENT [Suspect]
     Active Substance: UNSPECIFIED INGREDIENT
     Indication: Product used for unknown indication
     Dosage: UNK
     Route: 065
  28. HYDROXYCHLOROQUINE [Suspect]
     Active Substance: HYDROXYCHLOROQUINE
     Indication: Rheumatoid arthritis
     Dosage: 400 MG
     Route: 065
     Dates: start: 20090526
  29. HYDROXYCHLOROQUINE [Suspect]
     Active Substance: HYDROXYCHLOROQUINE
     Dosage: 200 MG
     Route: 065
     Dates: start: 20090922
  30. HYDROXYCHLOROQUINE [Suspect]
     Active Substance: HYDROXYCHLOROQUINE
     Dosage: 200 MG
     Route: 065
     Dates: start: 20091210
  31. HYDROXYCHLOROQUINE [Suspect]
     Active Substance: HYDROXYCHLOROQUINE
     Dosage: 200 MG
     Route: 065
     Dates: start: 20100510
  32. HYDROXYCHLOROQUINE [Suspect]
     Active Substance: HYDROXYCHLOROQUINE
     Dosage: 200 MG
     Route: 065
     Dates: start: 20110118
  33. HYDROXYCHLOROQUINE [Suspect]
     Active Substance: HYDROXYCHLOROQUINE
     Dosage: 200 MG
     Route: 065
     Dates: start: 20110608
  34. HYDROXYCHLOROQUINE [Suspect]
     Active Substance: HYDROXYCHLOROQUINE
     Dosage: 200 MG
     Route: 065
     Dates: start: 20111108
  35. HYDROXYCHLOROQUINE [Suspect]
     Active Substance: HYDROXYCHLOROQUINE
     Dosage: 200 MG
     Route: 065
     Dates: start: 20120509
  36. HYDROXYCHLOROQUINE [Suspect]
     Active Substance: HYDROXYCHLOROQUINE
     Dosage: 200 MG
     Route: 065
     Dates: start: 20121106
  37. HYDROXYCHLOROQUINE [Suspect]
     Active Substance: HYDROXYCHLOROQUINE
     Dosage: 200 MG
     Route: 065
     Dates: start: 20130603
  38. HYDROXYCHLOROQUINE [Suspect]
     Active Substance: HYDROXYCHLOROQUINE
     Dosage: 200 MG
     Route: 065
     Dates: start: 20131203
  39. HYDROXYCHLOROQUINE [Suspect]
     Active Substance: HYDROXYCHLOROQUINE
     Dosage: 200 MG
     Route: 065
     Dates: start: 20140411
  40. HYDROXYCHLOROQUINE [Suspect]
     Active Substance: HYDROXYCHLOROQUINE
     Dosage: 200 MG
     Route: 065
     Dates: start: 20150420
  41. HYDROXYCHLOROQUINE [Suspect]
     Active Substance: HYDROXYCHLOROQUINE
     Dosage: 200 MG
     Route: 065
     Dates: start: 20151014
  42. HYDROXYCHLOROQUINE [Suspect]
     Active Substance: HYDROXYCHLOROQUINE
     Dosage: 200 MG
     Route: 065
     Dates: start: 20160414
  43. HYDROXYCHLOROQUINE [Suspect]
     Active Substance: HYDROXYCHLOROQUINE
     Dosage: 200 MG
     Route: 065
     Dates: start: 20161107
  44. HYDROXYCHLOROQUINE [Suspect]
     Active Substance: HYDROXYCHLOROQUINE
     Dosage: 200 MG
     Route: 065
     Dates: start: 20170511

REACTIONS (2)
  - Small cell lung cancer metastatic [Fatal]
  - Empyema [Recovered/Resolved]

NARRATIVE: CASE EVENT DATE: 20170506
